FAERS Safety Report 19206686 (Version 1)
Quarter: 2021Q2

REPORT INFORMATION
  Report Type: Spontaneous
  Country: US (occurrence: US)
  Receive Date: 20210503
  Receipt Date: 20210503
  Transmission Date: 20210717
  Serious: Yes (Death)
  Sender: FDA-Public Use
  Company Number: None

PATIENT

DRUGS (2)
  1. FLUOXETINE BUSPIRONE [Concomitant]
  2. AIMOVIG [Suspect]
     Active Substance: ERENUMAB-AOOE

REACTIONS (11)
  - Affective disorder [None]
  - Irritability [None]
  - Intentional self-injury [None]
  - Lethargy [None]
  - Headache [None]
  - Depression [None]
  - Fatigue [None]
  - Gun shot wound [None]
  - Dyskinesia [None]
  - Completed suicide [None]
  - Asthenia [None]
